FAERS Safety Report 16313409 (Version 1)
Quarter: 2019Q2

REPORT INFORMATION
  Report Type: Report from Study
  Country: US (occurrence: US)
  Receive Date: 20190515
  Receipt Date: 20190515
  Transmission Date: 20190711
  Serious: Yes (Other)
  Sender: FDA-Public Use
  Company Number: PHHY2019US106178

PATIENT
  Sex: Female

DRUGS (1)
  1. SYSTANE (HYPROMELLOSE 2910 (4000 MPA.S)) [Suspect]
     Active Substance: HYPROMELLOSE 2910 (4000 MPA.S)
     Indication: PRODUCT USED FOR UNKNOWN INDICATION
     Route: 065

REACTIONS (9)
  - Brain cancer metastatic [Unknown]
  - Deafness [Unknown]
  - Ulcerative keratitis [Unknown]
  - Nasal cavity cancer [Unknown]
  - Radiation injury [Unknown]
  - Lacrimation decreased [Unknown]
  - Dry mouth [Unknown]
  - Visual impairment [Unknown]
  - Eye inflammation [Unknown]
